FAERS Safety Report 21374697 (Version 1)
Quarter: 2022Q3

REPORT INFORMATION
  Report Type: Spontaneous
  Country: DE (occurrence: DE)
  Receive Date: 20220926
  Receipt Date: 20220926
  Transmission Date: 20221027
  Serious: Yes (Death, Hospitalization, Other)
  Sender: FDA-Public Use
  Company Number: DE-AUROBINDO-AUR-APL-2018-014280

PATIENT
  Sex: Female
  Weight: 79.2 kg

DRUGS (6)
  1. ANASTROZOLE [Suspect]
     Active Substance: ANASTROZOLE
     Indication: Breast cancer metastatic
     Dosage: 1 MILLIGRAM, ONCE A DAY(1 MG, QD)
     Route: 048
     Dates: start: 20180105, end: 20181113
  2. ANASTROZOLE [Suspect]
     Active Substance: ANASTROZOLE
     Dosage: 1 MILLIGRAM, ONCE A DAY(1 MG, QD)
     Route: 048
     Dates: start: 20181117, end: 20181120
  3. KISQALI [Suspect]
     Active Substance: RIBOCICLIB
     Indication: Breast cancer metastatic
     Dosage: 3 DOSAGE FORM, ONCE A DAY
     Route: 048
     Dates: start: 20180105, end: 20180320
  4. KISQALI [Suspect]
     Active Substance: RIBOCICLIB
     Dosage: 600 MILLIGRAM(600 MG, QD (SCHEMA 21 DAYS INTAKE, THAN 7 DAYS PAUSE))
     Route: 048
  5. KISQALI [Suspect]
     Active Substance: RIBOCICLIB
     Dosage: 400 MILLIGRAM(400 MG, QD (SCHEMA 21 DAYS INTAKE THAN 7 DAY PAUSE))
     Route: 048
     Dates: start: 20181117, end: 20181120
  6. KISQALI [Suspect]
     Active Substance: RIBOCICLIB
     Dosage: 400 MILLIGRAM(400 MG, QD (SCHEMA 21 DAYS INTAKE THAN 7 DAY PAUSE))
     Route: 048
     Dates: start: 20180321, end: 20181113

REACTIONS (8)
  - Death [Fatal]
  - General physical health deterioration [Recovered/Resolved]
  - Pneumothorax [Recovered/Resolved]
  - Chronic kidney disease [Unknown]
  - Concomitant disease progression [Unknown]
  - Dyspnoea [Recovering/Resolving]
  - Cough [Recovered/Resolved]
  - Ascites [Recovering/Resolving]

NARRATIVE: CASE EVENT DATE: 20180101
